FAERS Safety Report 13295705 (Version 3)
Quarter: 2017Q2

REPORT INFORMATION
  Report Type: Report from Study
  Country: JP (occurrence: JP)
  Receive Date: 20170303
  Receipt Date: 20170608
  Transmission Date: 20170830
  Serious: Yes (Disabling)
  Sender: FDA-Public Use
  Company Number: JP-PFIZER INC-2017092321

PATIENT
  Age: 73 Year
  Sex: Male
  Weight: 74.5 kg

DRUGS (9)
  1. PREDONINE [Concomitant]
     Active Substance: PREDNISOLONE
     Dosage: 5 MG, DAILY
     Dates: start: 20151228, end: 20160927
  2. ADALAT [Concomitant]
     Active Substance: NIFEDIPINE
     Dosage: UNK
     Route: 048
     Dates: start: 20160530
  3. XELJANZ [Suspect]
     Active Substance: TOFACITINIB CITRATE
     Dosage: 5 MG, 2X/DAY
     Route: 048
     Dates: start: 20160831
  4. XELJANZ [Suspect]
     Active Substance: TOFACITINIB CITRATE
     Indication: RHEUMATOID ARTHRITIS
     Dosage: 5 MG, 1X/DAY
     Route: 048
     Dates: start: 20160803, end: 20160830
  5. AZULFIDINE [Concomitant]
     Active Substance: SULFASALAZINE
     Dosage: UNK
     Dates: start: 20140116
  6. RIMATIL [Concomitant]
     Active Substance: BUCILLAMINE
     Dosage: UNK
     Dates: start: 20150209, end: 20160831
  7. PREDONINE [Concomitant]
     Active Substance: PREDNISOLONE
     Dosage: 5 MG, DAILY
     Dates: start: 20170125
  8. PREDONINE [Concomitant]
     Active Substance: PREDNISOLONE
     Dosage: 3 MG, DAILY
     Dates: start: 20161026, end: 20170124
  9. PREDONINE [Concomitant]
     Active Substance: PREDNISOLONE
     Dosage: 4 MG, DAILY
     Dates: start: 20160928, end: 20161025

REACTIONS (2)
  - Blood urine present [Not Recovered/Not Resolved]
  - Protein urine present [Not Recovered/Not Resolved]

NARRATIVE: CASE EVENT DATE: 20160831
